FAERS Safety Report 5140626-3 (Version None)
Quarter: 2006Q4

REPORT INFORMATION
  Report Type: 
  Country: None (occurrence: None)
  Receive Date: 20061023
  Receipt Date: 20060906
  Transmission Date: 20070319
  Serious: Yes (Other)
  Sender: FDA-Public Use
  Company Number: 200410256BYL

PATIENT
  Age: 32 Year
  Sex: Male

DRUGS (14)
  1. KOGENATE [Suspect]
     Indication: FACTOR VIII DEFICIENCY
     Dosage: SEE IMAGE
     Route: 042
     Dates: start: 19930101, end: 19940101
  2. KOGENATE [Suspect]
     Indication: FACTOR VIII DEFICIENCY
     Dosage: SEE IMAGE
     Route: 042
     Dates: start: 19940711, end: 19940713
  3. KOGENATE [Suspect]
     Indication: FACTOR VIII DEFICIENCY
     Dosage: SEE IMAGE
     Route: 042
     Dates: start: 19941003, end: 19941005
  4. KOGENATE [Suspect]
     Indication: FACTOR VIII DEFICIENCY
     Dosage: SEE IMAGE
     Route: 042
     Dates: start: 19941213, end: 19941214
  5. KOGENATE [Suspect]
     Indication: FACTOR VIII DEFICIENCY
     Dosage: SEE IMAGE
     Route: 042
     Dates: start: 19941220, end: 19941221
  6. KOGENATE [Suspect]
     Indication: FACTOR VIII DEFICIENCY
     Dosage: SEE IMAGE
     Route: 042
     Dates: start: 19950214, end: 19950217
  7. KOGENATE [Suspect]
     Indication: FACTOR VIII DEFICIENCY
     Dosage: SEE IMAGE
     Route: 042
     Dates: start: 19950522, end: 19950523
  8. KOGENATE [Suspect]
     Indication: FACTOR VIII DEFICIENCY
     Dosage: SEE IMAGE
     Route: 042
     Dates: start: 19950714, end: 19950715
  9. KOGENATE [Suspect]
     Indication: FACTOR VIII DEFICIENCY
     Dosage: SEE IMAGE
     Route: 042
     Dates: start: 19950101
  10. KOGENATE [Suspect]
     Indication: FACTOR VIII DEFICIENCY
     Dosage: SEE IMAGE
     Route: 042
     Dates: start: 19950430
  11. AZT [Concomitant]
  12. LAMIVUDINE [Concomitant]
  13. D4T [Concomitant]
  14. NELFINAVIR [Concomitant]

REACTIONS (2)
  - ANTI FACTOR VIII ANTIBODY POSITIVE [None]
  - FACTOR VIII INHIBITION [None]
